FAERS Safety Report 17538326 (Version 12)
Quarter: 2022Q3

REPORT INFORMATION
  Report Type: Other
  Country: CA (occurrence: None)
  Receive Date: 20200313
  Receipt Date: 20220928
  Transmission Date: 20221026
  Serious: Yes (Other)
  Sender: FDA-Public Use
  Company Number: CA-ROCHE-2562689

PATIENT
  Age: 32 Year
  Sex: Female

DRUGS (2)
  1. OCREVUS [Suspect]
     Active Substance: OCRELIZUMAB
     Indication: Relapsing-remitting multiple sclerosis
     Dosage: THEN 600 MG EVERY 6 MONTHS
     Route: 042
     Dates: start: 20200212, end: 20220920
  2. SERTRALINE [Concomitant]
     Active Substance: SERTRALINE HYDROCHLORIDE
     Indication: Depression

REACTIONS (18)
  - Postoperative wound infection [Not Recovered/Not Resolved]
  - Incision site complication [Not Recovered/Not Resolved]
  - Depression [Recovered/Resolved]
  - Suicidal ideation [Not Recovered/Not Resolved]
  - Upper limb fracture [Recovering/Resolving]
  - Fall [Unknown]
  - Dizziness [Recovering/Resolving]
  - Infusion related reaction [Not Recovered/Not Resolved]
  - Headache [Recovered/Resolved]
  - Migraine [Recovered/Resolved]
  - Lymph node pain [Recovered/Resolved]
  - Back pain [Recovered/Resolved]
  - Crying [Recovered/Resolved]
  - Hypoaesthesia [Recovering/Resolving]
  - Paraesthesia [Recovering/Resolving]
  - Tinnitus [Recovering/Resolving]
  - COVID-19 [Recovered/Resolved]
  - Fatigue [Recovered/Resolved]

NARRATIVE: CASE EVENT DATE: 20210130
